FAERS Safety Report 8077763-X (Version None)
Quarter: 2012Q1

REPORT INFORMATION
  Report Type: 
  Country: None (occurrence: None)
  Receive Date: 20120127
  Receipt Date: 20120124
  Transmission Date: 20120608
  Serious: Yes (Hospitalization)
  Sender: FDA-Public Use
  Company Number: US-GILEAD-2011-0048096

PATIENT
  Age: 88 Year
  Sex: Male

DRUGS (2)
  1. REVATIO [Concomitant]
  2. LETAIRIS [Suspect]
     Indication: PRODUCT USED FOR UNKNOWN INDICATION
     Dosage: 5 MG,
     Route: 048
     Dates: start: 20111126

REACTIONS (6)
  - CARBON DIOXIDE INCREASED [None]
  - LOSS OF CONSCIOUSNESS [None]
  - SWELLING [None]
  - INSOMNIA [None]
  - OEDEMA [None]
  - DYSPNOEA [None]
